FAERS Safety Report 6991246-7 (Version None)
Quarter: 2010Q3

REPORT INFORMATION
  Report Type: 
  Country: None (occurrence: None)
  Receive Date: 20100916
  Receipt Date: 20080918
  Transmission Date: 20110219
  Serious: No
  Sender: FDA-Public Use
  Company Number: US-WYE-H06054208

PATIENT
  Age: 50 Year
  Sex: Female

DRUGS (5)
  1. PREMARIN [Suspect]
     Indication: HYSTERECTOMY
     Dosage: 0.625MG; UNSPECIFIED FREQUENCY
     Route: 048
  2. PREMARIN [Suspect]
     Dosage: 1.25 MG; UNSPECIFIED FREQUENCY
     Route: 048
     Dates: start: 20070901
  3. MULTI-VITAMINS [Concomitant]
  4. BIOTIN [Concomitant]
  5. IMITREX [Concomitant]

REACTIONS (3)
  - ALOPECIA [None]
  - HAIR GROWTH ABNORMAL [None]
  - TRICHORRHEXIS [None]
